FAERS Safety Report 14563797 (Version 1)
Quarter: 2018Q1

REPORT INFORMATION
  Report Type: Spontaneous
  Country: US (occurrence: US)
  Receive Date: 20180222
  Receipt Date: 20180222
  Transmission Date: 20180509
  Serious: No
  Sender: FDA-Public Use
  Company Number: US-AMAG PHARMACEUTICALS, INC.-AMAG201703807

PATIENT

DRUGS (1)
  1. INTRAROSA [Suspect]
     Active Substance: PRASTERONE
     Indication: VULVOVAGINAL DRYNESS
     Dosage: 6.5 MG, QD (NIGHTLY)
     Route: 067
     Dates: start: 201711

REACTIONS (9)
  - Vulvovaginal discomfort [Unknown]
  - Immunodeficiency [Unknown]
  - Stress [Unknown]
  - Cystitis [Unknown]
  - Fatigue [Unknown]
  - Vaginal discharge [Unknown]
  - Irritable bowel syndrome [Unknown]
  - Abdominal discomfort [Unknown]
  - Back pain [Unknown]
